FAERS Safety Report 7336103-1 (Version None)
Quarter: 2011Q1

REPORT INFORMATION
  Report Type: 
  Country: None (occurrence: None)
  Receive Date: 20110307
  Receipt Date: 20110301
  Transmission Date: 20110831
  Serious: Yes (Life-Threatening)
  Sender: FDA-Public Use
  Company Number: NL-ASTRAZENECA-2011SE11302

PATIENT
  Age: 25 Year
  Sex: Female
  Weight: 65 kg

DRUGS (6)
  1. TEMAZEPAM [Concomitant]
     Route: 048
  2. RANITIDINE [Concomitant]
     Route: 048
  3. OXAZEPAM [Concomitant]
     Route: 048
  4. SUMATRIPTAN AND NAPROXEN SODIUM [Concomitant]
     Route: 045
  5. SEROQUEL [Suspect]
     Route: 048
     Dates: start: 20100820, end: 20100821
  6. HYDROXOCOBALAMINE [Concomitant]
     Dosage: 500 MCG/ML, AMP 2 ML 1 DF UNKNOWN
     Route: 058

REACTIONS (5)
  - CONVULSION [None]
  - CONFUSIONAL STATE [None]
  - DYSPNOEA [None]
  - HOT FLUSH [None]
  - CHEST DISCOMFORT [None]
